FAERS Safety Report 25834733 (Version 1)
Quarter: 2025Q3

REPORT INFORMATION
  Report Type: Spontaneous
  Country: EU (occurrence: EU)
  Receive Date: 20250923
  Receipt Date: 20250923
  Transmission Date: 20251020
  Serious: Yes (Hospitalization)
  Sender: CATALYST PHARMA
  Company Number: None

PATIENT
  Age: 17 Year
  Sex: Female

DRUGS (5)
  1. FYCOMPA [Suspect]
     Active Substance: PERAMPANEL
     Indication: Epilepsy
     Dosage: 2 MILLIGRAM(S), 1 IN 1 DAY
     Route: 048
     Dates: start: 202508, end: 202508
  2. FYCOMPA [Suspect]
     Active Substance: PERAMPANEL
     Dosage: 4 MILLIGRAM(S), 1 IN 1 DAY
     Route: 048
     Dates: start: 202508, end: 202508
  3. FYCOMPA [Suspect]
     Active Substance: PERAMPANEL
     Dosage: 6 MILLIGRAM(S), 1 IN 1 DAY
     Route: 048
     Dates: start: 202508, end: 202508
  4. FYCOMPA [Suspect]
     Active Substance: PERAMPANEL
     Dosage: 8 MILLIGRAM(S), 1 IN 1 DAY
     Route: 048
     Dates: start: 202508, end: 202508
  5. FYCOMPA [Suspect]
     Active Substance: PERAMPANEL
     Dosage: 4 MILLIGRAM(S), 1 IN 1 DAY
     Route: 048
     Dates: start: 20250829

REACTIONS (3)
  - Behaviour disorder [Recovered/Resolved with Sequelae]
  - Aphasia [Recovered/Resolved with Sequelae]
  - Dystonia [Recovered/Resolved with Sequelae]

NARRATIVE: CASE EVENT DATE: 20250819
